FAERS Safety Report 11860024 (Version 1)
Quarter: 2015Q4

REPORT INFORMATION
  Report Type: Spontaneous
  Country: JP (occurrence: JP)
  Receive Date: 20151222
  Receipt Date: 20151222
  Transmission Date: 20160305
  Serious: Yes (Death, Hospitalization)
  Sender: FDA-Public Use
  Company Number: JP-TEVA-618235ISR

PATIENT
  Age: 54 Year
  Sex: Female
  Weight: 36 kg

DRUGS (10)
  1. OPSO [Concomitant]
     Active Substance: MORPHINE HYDROCHLORIDE
     Indication: BREAKTHROUGH PAIN
     Route: 048
     Dates: start: 20150820
  2. 10% SODIUM CHLORIDE [Concomitant]
     Active Substance: SODIUM CHLORIDE
     Indication: GASTRIC CANCER
     Dosage: 2 GRAM DAILY;
     Route: 042
  3. INTRALIPOS [Concomitant]
     Active Substance: SOYBEAN OIL
     Indication: GASTRIC CANCER
     Dosage: 100 ML DAILY;
     Route: 041
  4. AZILVA [Concomitant]
     Active Substance: AZILSARTAN KAMEDOXOMIL
     Indication: HYPERTENSION
     Dosage: 20 MILLIGRAM DAILY;
     Route: 048
     Dates: start: 20150815
  5. LOXOPROFEN [Concomitant]
     Active Substance: LOXOPROFEN
     Indication: CANCER PAIN
     Route: 048
     Dates: start: 20150814
  6. MINERIC-5 [Concomitant]
     Indication: GASTRIC CANCER
     Dosage: 2 ML DAILY;
     Route: 041
  7. FENTOS [Concomitant]
     Active Substance: FENTANYL
     Indication: CANCER PAIN
     Dosage: 3 MILLIGRAM DAILY;
     Route: 062
     Dates: start: 20150817
  8. AMLODIPINE [Concomitant]
     Active Substance: AMLODIPINE BESYLATE
     Indication: HYPERTENSION
     Dosage: 5 MILLIGRAM DAILY;
     Route: 048
     Dates: start: 20150814
  9. E-FEN BUCCAL [Suspect]
     Active Substance: FENTANYL CITRATE
     Indication: BREAKTHROUGH PAIN
     Dosage: 100 MICROGRAM DAILY;
     Route: 002
     Dates: start: 20150818, end: 20150818
  10. FULCALIQ [Concomitant]
     Active Substance: AMINO ACIDS\CARBOHYDRATES\ELECTROLYTES NOS\VITAMINS
     Indication: GASTRIC CANCER
     Dosage: 2 DOSAGE FORMS DAILY;
     Route: 041

REACTIONS (6)
  - C-reactive protein increased [Recovering/Resolving]
  - Pyrexia [Not Recovered/Not Resolved]
  - Gastric cancer [Fatal]
  - Vomiting [Not Recovered/Not Resolved]
  - Drug ineffective [Unknown]
  - Nausea [Not Recovered/Not Resolved]

NARRATIVE: CASE EVENT DATE: 20150902
